FAERS Safety Report 16339476 (Version 7)
Quarter: 2024Q4

REPORT INFORMATION
  Report Type: Report from Study
  Country: US (occurrence: US)
  Receive Date: 20190521
  Receipt Date: 20241121
  Transmission Date: 20250115
  Serious: Yes (Other)
  Sender: SANOFI AVENTIS
  Company Number: US-SA-2019SA135250

PATIENT
  Age: 59 Year
  Sex: Female

DRUGS (7)
  1. DUPILUMAB [Suspect]
     Active Substance: DUPILUMAB
     Indication: Product used for unknown indication
     Dosage: 300 MG, QOW
     Route: 058
     Dates: start: 201904
  2. DUPILUMAB [Suspect]
     Active Substance: DUPILUMAB
     Dosage: 300 MG, QOW
     Route: 058
  3. DUPILUMAB [Suspect]
     Active Substance: DUPILUMAB
     Indication: Dermatitis atopic
     Dosage: 300 MG, QOW
     Route: 058
     Dates: start: 20220817
  4. KLONOPIN [Concomitant]
     Active Substance: CLONAZEPAM
  5. FOSAMAX [Concomitant]
     Active Substance: ALENDRONATE SODIUM
  6. TIZANIDINE [Concomitant]
     Active Substance: TIZANIDINE
  7. ANASTROZOLE [Concomitant]
     Active Substance: ANASTROZOLE

REACTIONS (13)
  - Chest injury [Unknown]
  - Neoplasm malignant [Unknown]
  - Influenza [Unknown]
  - Headache [Unknown]
  - Lacrimation increased [Unknown]
  - Eyelid margin crusting [Unknown]
  - Fall [Unknown]
  - Musculoskeletal chest pain [Unknown]
  - Rash [Unknown]
  - Fall [Unknown]
  - Humerus fracture [Unknown]
  - Rib fracture [Unknown]
  - Product dose omission issue [Unknown]

NARRATIVE: CASE EVENT DATE: 20190512
